FAERS Safety Report 24608402 (Version 3)
Quarter: 2025Q2

REPORT INFORMATION
  Report Type: Report from Study
  Country: US (occurrence: US)
  Receive Date: 20241112
  Receipt Date: 20250625
  Transmission Date: 20250716
  Serious: Yes (Hospitalization)
  Sender: EISAI
  Company Number: US-Eisai-EC-2024-178473

PATIENT
  Age: 77 Year
  Sex: Male

DRUGS (7)
  1. LENVIMA [Suspect]
     Active Substance: LENVATINIB
     Indication: Renal cell carcinoma
     Dates: start: 20240815, end: 202410
  2. LENVIMA [Suspect]
     Active Substance: LENVATINIB
     Dates: start: 20241031, end: 202411
  3. LENVIMA [Suspect]
     Active Substance: LENVATINIB
     Dates: start: 202412, end: 20241209
  4. LENVIMA [Suspect]
     Active Substance: LENVATINIB
  5. LENVIMA [Suspect]
     Active Substance: LENVATINIB
     Dates: start: 2025, end: 2025
  6. LENVIMA [Suspect]
     Active Substance: LENVATINIB
     Dates: start: 20250620
  7. KEYTRUDA [Concomitant]
     Active Substance: PEMBROLIZUMAB
     Indication: Renal cell carcinoma

REACTIONS (3)
  - Hypertension [Recovered/Resolved]
  - Hypotension [Unknown]
  - Headache [Unknown]

NARRATIVE: CASE EVENT DATE: 20241001
